FAERS Safety Report 4973029-2 (Version None)
Quarter: 2006Q2

REPORT INFORMATION
  Report Type: 
  Country: None (occurrence: None)
  Receive Date: 20060410
  Receipt Date: 20060331
  Transmission Date: 20061013
  Serious: Yes (Other)
  Sender: FDA-Public Use
  Company Number: 2006045197

PATIENT
  Age: 69 Year
  Sex: Female
  Weight: 47.6277 kg

DRUGS (7)
  1. LYRICA [Suspect]
     Indication: NEUROPATHY
     Dosage: 150 MG (75 MG, 2 IN 1 D),
     Dates: start: 20060101
  2. LYRICA [Suspect]
     Indication: PAIN
     Dosage: 150 MG (75 MG, 2 IN 1 D),
     Dates: start: 20060101
  3. LEXAPRO [Suspect]
     Indication: ILL-DEFINED DISORDER
     Dosage: 10 MG (10 MG, 1 IN 1 D),
     Dates: start: 20051101
  4. METOPROLOL (METOPROLOL) [Concomitant]
  5. SYNTHROID [Concomitant]
  6. TRAMADOL HCL [Concomitant]
  7. MIACALCIN [Concomitant]

REACTIONS (10)
  - CONFUSIONAL STATE [None]
  - CONTUSION [None]
  - FALL [None]
  - HAEMATOCRIT DECREASED [None]
  - HAEMOGLOBIN DECREASED [None]
  - PLATELET COUNT DECREASED [None]
  - RED BLOOD CELL COUNT ABNORMAL [None]
  - RED CELL DISTRIBUTION WIDTH INCREASED [None]
  - SKIN LACERATION [None]
  - WHEELCHAIR USER [None]
